FAERS Safety Report 4887218-9 (Version None)
Quarter: 2005Q4

REPORT INFORMATION
  Report Type: 
  Country: None (occurrence: None)
  Receive Date: 20051223
  Receipt Date: 20050517
  Transmission Date: 20060501
  Serious: Yes (Hospitalization, Other)
  Sender: FDA-Public Use
  Company Number: US_0502111670

PATIENT
  Age: 60 Year
  Sex: Male
  Weight: 125 kg

DRUGS (8)
  1. HUMALOG MIX 75/25 [Suspect]
     Indication: DIABETES MELLITUS NON-INSULIN-DEPENDENT
     Dosage: 85 U DAY
     Dates: start: 19970101
  2. COUMADIN [Concomitant]
  3. VOLTAREN /SCH/(DISCLOFENAC POTASSIUM) [Concomitant]
  4. NEXIUM [Concomitant]
  5. XANAX [Concomitant]
  6. LOVENOX [Concomitant]
  7. ADVAIR DISKUS 100/50 [Concomitant]
  8. LORAZEPAM [Concomitant]

REACTIONS (30)
  - BLOOD ALDOSTERONE ABNORMAL [None]
  - BLOOD GLUCOSE INCREASED [None]
  - CARPAL TUNNEL SYNDROME [None]
  - CATARACT DIABETIC [None]
  - COAGULATION FACTOR DECREASED [None]
  - CONSTIPATION [None]
  - COR PULMONALE [None]
  - DIABETIC NEUROPATHY [None]
  - DIZZINESS [None]
  - DRY MOUTH [None]
  - FALL [None]
  - GASTROOESOPHAGEAL REFLUX DISEASE [None]
  - HYPERKALAEMIA [None]
  - HYPOAESTHESIA [None]
  - INJURY [None]
  - IRRITABILITY [None]
  - LIMB INJURY [None]
  - LOBAR PNEUMONIA [None]
  - LOSS OF CONSCIOUSNESS [None]
  - OSTEOARTHRITIS [None]
  - PERITONEAL LESION [None]
  - SEXUAL DYSFUNCTION [None]
  - SHOCK HYPOGLYCAEMIC [None]
  - SINUS CONGESTION [None]
  - SLEEP APNOEA SYNDROME [None]
  - SOMNOLENCE [None]
  - TEMPERATURE INTOLERANCE [None]
  - TINNITUS [None]
  - TREMOR [None]
  - VIRAL INFECTION [None]
